FAERS Safety Report 21340648 (Version 2)
Quarter: 2022Q3

REPORT INFORMATION
  Report Type: Spontaneous
  Country: US (occurrence: None)
  Receive Date: 20220916
  Receipt Date: 20220918
  Transmission Date: 20221026
  Serious: Yes (Death)
  Sender: FDA-Public Use
  Company Number: US-ROCHE-3180699

PATIENT
  Age: 80 Year
  Sex: Male

DRUGS (8)
  1. ESBRIET [Suspect]
     Active Substance: PIRFENIDONE
     Indication: Pulmonary fibrosis
     Dosage: TAKE 3 CAPSULES BY MOUTH 3 TIMES A DAY WITH FOOD
     Route: 048
  2. POTASSIUM [Concomitant]
     Active Substance: POTASSIUM
  3. ASPIRIN [Concomitant]
     Active Substance: ASPIRIN
  4. FUROSEMIDE [Concomitant]
     Active Substance: FUROSEMIDE
  5. METOPROLOL [Concomitant]
     Active Substance: METOPROLOL
  6. OMEPRAZOLE [Concomitant]
     Active Substance: OMEPRAZOLE
  7. RAMIPRIL [Concomitant]
     Active Substance: RAMIPRIL
  8. SIMVASTATIN [Concomitant]
     Active Substance: SIMVASTATIN

REACTIONS (1)
  - Death [Fatal]

NARRATIVE: CASE EVENT DATE: 20220913
